FAERS Safety Report 6219147-2 (Version None)
Quarter: 2009Q2

REPORT INFORMATION
  Report Type: 
  Country: None (occurrence: None)
  Receive Date: 20090605
  Receipt Date: 20090605
  Transmission Date: 20091009
  Serious: Yes (Life-Threatening, Disabling, Other)
  Sender: FDA-Public Use
  Company Number: None

PATIENT
  Age: 53 Year
  Sex: Female
  Weight: 70.3075 kg

DRUGS (2)
  1. RIFAMPIN [Suspect]
     Indication: MYCOBACTERIUM AVIUM COMPLEX INFECTION
     Dosage: ORAL, DAILY
     Route: 048
     Dates: start: 19790101, end: 19870101
  2. ETHAMBUTOL HCL [Concomitant]

REACTIONS (2)
  - NO THERAPEUTIC RESPONSE [None]
  - SYSTEMIC LUPUS ERYTHEMATOSUS [None]
